FAERS Safety Report 6643420-7 (Version None)
Quarter: 2010Q1

REPORT INFORMATION
  Report Type: 
  Country: None (occurrence: None)
  Receive Date: 20100319
  Receipt Date: 20100315
  Transmission Date: 20100710
  Serious: Yes (Death, Other)
  Sender: FDA-Public Use
  Company Number: US-ROCHE-691076

PATIENT
  Age: 52 Year
  Sex: Female

DRUGS (9)
  1. TAMIFLU [Suspect]
     Indication: H1N1 INFLUENZA
     Route: 048
  2. TAMIFLU [Suspect]
     Route: 048
  3. LEVOFLOXACIN [Concomitant]
  4. FLUDARABINE [Concomitant]
  5. BUSULFEX [Concomitant]
     Route: 042
  6. METHOTREXATE [Concomitant]
  7. TACROLIMUS [Concomitant]
     Route: 048
  8. SIROLIMUS [Concomitant]
     Route: 048
  9. PREDNISONE [Concomitant]

REACTIONS (3)
  - ACUTE RESPIRATORY DISTRESS SYNDROME [None]
  - DRUG INEFFECTIVE [None]
  - OVERDOSE [None]
